FAERS Safety Report 18292153 (Version 1)
Quarter: 2020Q3

REPORT INFORMATION
  Report Type: Spontaneous
  Country: DK (occurrence: DK)
  Receive Date: 20200922
  Receipt Date: 20200922
  Transmission Date: 20201103
  Serious: Yes (Death, Hospitalization)
  Sender: FDA-Public Use
  Company Number: DK-009507513-2009DNK005867

PATIENT
  Age: 80 Year
  Sex: Female

DRUGS (14)
  1. OXAZEPAM. [Concomitant]
     Active Substance: OXAZEPAM
     Indication: SEDATIVE THERAPY
     Dosage: STRENGTH: 15 MG DOSAGE: MAX 1 DOSE DAILY, 7.5MG, AS NECESSARY
     Route: 048
     Dates: start: 20180625
  2. ALBUTEROL. [Concomitant]
     Active Substance: ALBUTEROL
     Indication: BRONCHOSPASM
     Dosage: STRENGTH: 0.1 MG/DOSE DOSAGE: MAX 12 TIMES DAILY, 0.2 MG, AS NECESSARY
     Route: 055
     Dates: start: 20160610, end: 20200617
  3. PANTOPRAZOLE [Concomitant]
     Active Substance: PANTOPRAZOLE
     Indication: GASTROOESOPHAGEAL REFLUX DISEASE
     Dosage: STRENGTH: 20 MG, 20MG, ONE DAY
     Route: 048
     Dates: start: 20170406
  4. ZOPICLONE [Concomitant]
     Active Substance: ZOPICLONE
     Indication: INSOMNIA
     Dosage: STRENGTH: 7.5 MG DOSAGE: MAX 1 DOSE DAILY, 3.75MG, AS NECESSARY
     Route: 048
     Dates: start: 20180625
  5. VAGIFEM [Concomitant]
     Active Substance: ESTRADIOL
     Indication: HORMONE THERAPY
     Dosage: STRENGTH: 10 MICROGRAM, 20 MICROGRAM, ONE WEEK
     Route: 067
     Dates: start: 20140701
  6. PROCORALAN [Concomitant]
     Active Substance: IVABRADINE
     Indication: CARDIAC FAILURE
     Dosage: STRENGTH: 7.5 MG, 15MG, ONE DAY
     Route: 048
     Dates: start: 20151223
  7. ISOSORBIDE MONONITRATE. [Concomitant]
     Active Substance: ISOSORBIDE MONONITRATE
     Indication: CARDIAC DISORDER
     Dosage: STRENGTH: 60 MG, 60MG, ONE DAY
     Route: 048
     Dates: start: 20170929
  8. ASPIRIN. [Concomitant]
     Active Substance: ASPIRIN
     Indication: THROMBOSIS PROPHYLAXIS
     Dosage: STRENGTH: 75 MG, 75 MG, ONE DAY
     Route: 048
     Dates: start: 20140519
  9. ALENDRONIC ACID [Concomitant]
     Active Substance: ALENDRONIC ACID
     Indication: OSTEOPOROSIS
     Dosage: STENGTH: 70 MG, 70MG, ONE WEEK
     Route: 048
     Dates: start: 20161017
  10. ROSUVASTATIN. [Concomitant]
     Active Substance: ROSUVASTATIN
     Indication: HYPERCHOLESTEROLAEMIA
     Dosage: STRENGTH: 20 MG, 20MG, ONE DAY
     Route: 048
     Dates: start: 20160205
  11. KEYTRUDA [Suspect]
     Active Substance: PEMBROLIZUMAB
     Indication: NON-SMALL CELL LUNG CANCER
     Dosage: STRENGTH: UNKNOWN DOSAGE: A TOTAL OF 7 SERIES GIVEN, LATEST TREATEMENT WAS 25TH OF MAY 2020, 100MG
     Route: 042
     Dates: start: 20200121, end: 20200615
  12. SPIRIVA [Concomitant]
     Active Substance: TIOTROPIUM BROMIDE MONOHYDRATE
     Indication: CHRONIC OBSTRUCTIVE PULMONARY DISEASE
     Dosage: START DATE UNKNOWN, BUT AT LEAST SINCE 12?APR?2018; STRENGTH: 18 MICROGRAM, 18 MICROGRAM, ONE DAY
     Route: 055
  13. LOSARTAN POTASSIUM. [Concomitant]
     Active Substance: LOSARTAN POTASSIUM
     Indication: HYPERTENSION
     Dosage: STRENGTH: 50 MG, 50MG, ONE DAY
     Route: 048
     Dates: start: 20200420
  14. BUFOMIX EASYHALER [Concomitant]
     Active Substance: BUDESONIDE\FORMOTEROL FUMARATE
     Indication: LUNG DISORDER
     Dosage: STRENGTH: 9+320 MICROGRAM/DOSE, 2 DOSAGE FORM, ONE DAY
     Route: 055
     Dates: start: 20190612

REACTIONS (5)
  - Hypothyroidism [Fatal]
  - Drug-induced liver injury [Fatal]
  - Pneumonitis [Fatal]
  - Respiratory failure [Fatal]
  - Thyroiditis [Fatal]

NARRATIVE: CASE EVENT DATE: 2020
